FAERS Safety Report 9217607 (Version 2)
Quarter: 2014Q2

REPORT INFORMATION
  Report Type: Spontaneous
  Country: SI (occurrence: SI)
  Receive Date: 20130408
  Receipt Date: 20140403
  Transmission Date: 20141212
  Serious: Yes (Life-Threatening, Hospitalization)
  Sender: FDA-Public Use
  Company Number: PHHY2013SI032987

PATIENT
  Sex: Female

DRUGS (1)
  1. GILENYA [Suspect]
     Indication: MULTIPLE SCLEROSIS
     Dosage: 0.5 MG, QD
     Route: 048
     Dates: start: 201209, end: 201303

REACTIONS (4)
  - Abdominal sepsis [Unknown]
  - Appendicitis [Unknown]
  - Abdominal pain [Unknown]
  - Pyrexia [Unknown]
